FAERS Safety Report 23571614 (Version 1)
Quarter: 2024Q1

REPORT INFORMATION
  Report Type: Spontaneous
  Country: US (occurrence: US)
  Receive Date: 20240227
  Receipt Date: 20240227
  Transmission Date: 20240409
  Serious: No
  Sender: FDA-Public Use
  Company Number: US-Calliditas-2024CAL00265

PATIENT
  Age: 46 Year
  Sex: Female

DRUGS (2)
  1. TARPEYO [Suspect]
     Active Substance: BUDESONIDE
     Indication: IgA nephropathy
     Dosage: 16 MG (4 MG CAPSULES) ONCE DAILY
     Route: 048
     Dates: start: 20240203
  2. FILSPARI [Concomitant]
     Active Substance: SPARSENTAN
     Dosage: 200MG DAILY FOR THE FIRST 14 DAYS AND THEN 400MG DAILY

REACTIONS (1)
  - Peripheral swelling [Unknown]
